FAERS Safety Report 5178535-6 (Version None)
Quarter: 2006Q4

REPORT INFORMATION
  Report Type: 
  Country: None (occurrence: None)
  Receive Date: 20061218
  Receipt Date: 20060817
  Transmission Date: 20070319
  Serious: No
  Sender: FDA-Public Use
  Company Number: US-AMGEN-KDL190291

PATIENT
  Sex: Female

DRUGS (3)
  1. ENBREL [Suspect]
     Indication: RHEUMATOID ARTHRITIS
     Route: 058
     Dates: start: 20060712
  2. PREDNISONE TAB [Concomitant]
  3. IMURAN [Concomitant]

REACTIONS (2)
  - STRESS [None]
  - THERAPEUTIC RESPONSE DELAYED [None]
